FAERS Safety Report 5923611-0 (Version None)
Quarter: 2008Q4

REPORT INFORMATION
  Report Type: 
  Country: None (occurrence: None)
  Receive Date: 20081015
  Receipt Date: 20081003
  Transmission Date: 20090506
  Serious: Yes (Hospitalization)
  Sender: FDA-Public Use
  Company Number: 08H-163-0315004-00

PATIENT
  Age: 32 Year
  Sex: Female

DRUGS (5)
  1. EPINEPHRINE [Suspect]
     Indication: HYPERSENSITIVITY
     Dosage: 1 MG, INTRAVENOUS
     Route: 042
  2. DIPHENHYDRAMINE HCL [Concomitant]
  3. HYDROCORTISONE [Concomitant]
  4. OXYGEN (OXYGEN) [Concomitant]
  5. NONIONIC IODINATED CONTRAST MATERIAL (CONTRAST MEDIA) [Concomitant]

REACTIONS (3)
  - CHEST PAIN [None]
  - INCORRECT DOSE ADMINISTERED [None]
  - LABORATORY TEST ABNORMAL [None]
